FAERS Safety Report 7180902-6 (Version None)
Quarter: 2010Q4

REPORT INFORMATION
  Report Type: 
  Country: None (occurrence: None)
  Receive Date: 20101221
  Receipt Date: 20100414
  Transmission Date: 20110411
  Serious: No
  Sender: FDA-Public Use
  Company Number: US-AMGEN-KDL406147

PATIENT

DRUGS (11)
  1. ENBREL [Suspect]
     Indication: PRODUCT USED FOR UNKNOWN INDICATION
     Dosage: 50 MG, QWK
     Route: 058
  2. TESTOSTERONE [Concomitant]
     Dosage: 50 MG, UNK
  3. ZOLPIDEM [Concomitant]
     Dosage: 10 MG, UNK
  4. TRAMADOL HYDROCHLORIDE [Concomitant]
     Dosage: 50 MG, UNK
  5. OMEPRAZOLE [Concomitant]
     Dosage: 10 MG, UNK
  6. GABAPENTIN [Concomitant]
     Dosage: 100 MG, UNK
  7. ALPRAZOLAM [Concomitant]
     Dosage: 1 MG, UNK
  8. ERGOCALCIFEROL [Concomitant]
     Dosage: 400 IU, UNK
  9. CYANOCOBALAMIN [Concomitant]
     Dosage: 100 A?G, UNK
  10. MULTI-VITAMINS [Concomitant]
     Dosage: UNK UNK, UNK
  11. PROCHLORPERAZINE [Concomitant]
     Dosage: 2.5 MG, UNK

REACTIONS (4)
  - ALOPECIA [None]
  - ARTHRALGIA [None]
  - MUSCULOSKELETAL PAIN [None]
  - PAIN IN EXTREMITY [None]
